FAERS Safety Report 11516932 (Version 1)
Quarter: 2015Q3

REPORT INFORMATION
  Report Type: Spontaneous
  Country: US (occurrence: US)
  Receive Date: 20150917
  Receipt Date: 20150917
  Transmission Date: 20151125
  Serious: Yes (Death, Other)
  Sender: FDA-Public Use
  Company Number: US-TAKEDA-2014TUS011188

PATIENT

DRUGS (8)
  1. GLUCOTROL [Concomitant]
     Active Substance: GLIPIZIDE
     Dosage: 5 MG, UNK
     Dates: start: 201208, end: 201210
  2. ACTOS [Suspect]
     Active Substance: PIOGLITAZONE HYDROCHLORIDE
     Indication: TYPE 2 DIABETES MELLITUS
     Dosage: 30 MG, UNK
     Route: 048
     Dates: start: 201110
  3. GLUCOPHAGE [Concomitant]
     Active Substance: METFORMIN HYDROCHLORIDE
     Dosage: 500 MG, TID
     Dates: start: 2001, end: 2006
  4. DIABETA                            /00145301/ [Concomitant]
     Dosage: 5 MG AND 2.5 MG, UNK
     Dates: start: 201111, end: 201209
  5. JANUVIA [Concomitant]
     Active Substance: SITAGLIPTIN PHOSPHATE
     Dosage: 100 MG, UNK
     Dates: start: 200907, end: 201203
  6. AMARYL [Concomitant]
     Active Substance: GLIMEPIRIDE
     Dosage: 1/2 OF 2 MG TABLET, TID
     Dates: start: 200304, end: 201201
  7. ACTOPLUS MET [Suspect]
     Active Substance: METFORMIN HYDROCHLORIDE\PIOGLITAZONE HYDROCHLORIDE
     Indication: TYPE 2 DIABETES MELLITUS
     Dosage: 15-500 MG, UNK
     Route: 048
     Dates: start: 200907, end: 201106
  8. METFORMIN [Concomitant]
     Active Substance: METFORMIN HYDROCHLORIDE
     Dosage: 250 MG AND 500 MG BID
     Dates: start: 2005, end: 2011

REACTIONS (3)
  - Bladder squamous cell carcinoma stage unspecified [Fatal]
  - Bladder transitional cell carcinoma [Fatal]
  - Urinary tract infection [Recovered/Resolved]

NARRATIVE: CASE EVENT DATE: 2009
